FAERS Safety Report 17364513 (Version 1)
Quarter: 2020Q1

REPORT INFORMATION
  Report Type: Spontaneous
  Country: NL (occurrence: NL)
  Receive Date: 20200204
  Receipt Date: 20200204
  Transmission Date: 20200409
  Serious: Yes (Death, Life-Threatening, Other)
  Sender: FDA-Public Use
  Company Number: NL-AUROBINDO-AUR-APL-2020-004184

PATIENT
  Age: 57 Year
  Sex: Male
  Weight: 85 kg

DRUGS (1)
  1. CELECOXIB 100 MG CAPSULES, HARD [Suspect]
     Active Substance: CELECOXIB
     Indication: PAIN
     Dosage: 100 MILLIGRAM (WEET IK NIET, 1)
     Route: 065
     Dates: start: 20190227

REACTIONS (1)
  - Gastrointestinal haemorrhage [Fatal]

NARRATIVE: CASE EVENT DATE: 20191224
